FAERS Safety Report 7996452-0 (Version None)
Quarter: 2011Q4

REPORT INFORMATION
  Report Type: 
  Country: None (occurrence: None)
  Receive Date: 20111220
  Receipt Date: 20090129
  Transmission Date: 20120403
  Serious: Yes (Other)
  Sender: FDA-Public Use
  Company Number: PHHY2009MX070283

PATIENT
  Age: 79 Year
  Sex: Female

DRUGS (4)
  1. EXFORGE [Suspect]
     Indication: HYPERTENSION
     Dosage: 1 DF, QD
  2. ZINTREPID [Concomitant]
     Indication: BLOOD CHOLESTEROL
  3. VENALOT [Concomitant]
     Indication: CARDIOVASCULAR DISORDER
  4. DILOX [Concomitant]
     Indication: PAIN

REACTIONS (3)
  - BALANCE DISORDER [None]
  - INJURY [None]
  - IMPAIRED HEALING [None]
